FAERS Safety Report 9059382 (Version 11)
Quarter: 2015Q3

REPORT INFORMATION
  Report Type: Spontaneous
  Country: US (occurrence: US)
  Receive Date: 20130211
  Receipt Date: 20150811
  Transmission Date: 20151125
  Serious: Yes (Hospitalization, Other)
  Sender: FDA-Public Use
  Company Number: US-GLAXOSMITHKLINE-A0917426A

PATIENT
  Age: 60 Year
  Sex: Female
  Weight: 56.2 kg

DRUGS (13)
  1. TRACLEER [Suspect]
     Active Substance: BOSENTAN
     Route: 048
     Dates: end: 2011
  2. WARFARIN [Concomitant]
     Active Substance: WARFARIN
  3. FLOLAN [Suspect]
     Active Substance: EPOPROSTENOL SODIUM
     Dosage: UNK
     Dates: start: 20100609
  4. FLOLAN [Suspect]
     Active Substance: EPOPROSTENOL SODIUM
     Dosage: 43 NG/KG/MIN
     Dates: start: 20100628
  5. FLOLAN [Suspect]
     Active Substance: EPOPROSTENOL SODIUM
     Dosage: UNK
     Dates: start: 20100609
  6. FLOLAN [Suspect]
     Active Substance: EPOPROSTENOL SODIUM
     Dosage: UNK
     Dates: start: 20100609
  7. FLOLAN [Suspect]
     Active Substance: EPOPROSTENOL SODIUM
     Dosage: UNK
     Dates: start: 20100609
  8. FLOLAN [Suspect]
     Active Substance: EPOPROSTENOL SODIUM
     Dosage: UNK
     Dates: start: 20100609
  9. FLOLAN [Suspect]
     Active Substance: EPOPROSTENOL SODIUM
     Dosage: UNK
     Dates: start: 20100609
  10. FLOLAN [Suspect]
     Active Substance: EPOPROSTENOL SODIUM
     Dosage: 39 NG/KG/MIN CONTINUOUS; CONCENTRATION: 45,000 NG/ML; PUMP RATE: 61 ML/DAY; VIAL STRENGTH: 1.5 MG
     Route: 042
     Dates: start: 20150211
  11. FLOLAN [Suspect]
     Active Substance: EPOPROSTENOL SODIUM
     Indication: PULMONARY ARTERIAL HYPERTENSION
     Dosage: 20 NG/KG/ML, 30,000 NG/ML, 60 ML/DAY PUMP RATE45 NG/KG/MIN, 45,000 NG/ML, 1.5 MG VIAL STRENGTH7[...]
     Route: 042
     Dates: start: 20100609
  12. FLOLAN [Suspect]
     Active Substance: EPOPROSTENOL SODIUM
     Dosage: 39 NG/KG/MIN CONTINUOUS; CONCENTRATION: 45,000 NG/ML; PUMP RATE: 61 ML/DAY; VIAL STRENGTH: 1.5 MG
     Route: 042
     Dates: start: 20100626
  13. FLOLAN [Suspect]
     Active Substance: EPOPROSTENOL SODIUM
     Dosage: 41NG/KG/MIN, 45,000 NG/ML, 64 ML/DAY PUMP RATE, 1.5 MG VIAL STRENGTH
     Route: 042
     Dates: start: 20100628

REACTIONS (15)
  - Hospitalisation [Not Recovered/Not Resolved]
  - Liver disorder [Unknown]
  - Injury [Unknown]
  - Dyspnoea [Unknown]
  - Dizziness [Unknown]
  - Central venous catheterisation [Unknown]
  - Catheter site erythema [Unknown]
  - Pulmonary oedema [Unknown]
  - Peripheral swelling [Unknown]
  - Epistaxis [Unknown]
  - Infusion site pruritus [Unknown]
  - Central venous catheter removal [Unknown]
  - Syncope [Unknown]
  - Asthenia [Unknown]
  - Fall [Unknown]

NARRATIVE: CASE EVENT DATE: 20110302
